FAERS Safety Report 7256280-0 (Version None)
Quarter: 2011Q1

REPORT INFORMATION
  Report Type: 
  Country: None (occurrence: None)
  Receive Date: 20110129
  Receipt Date: 20100517
  Transmission Date: 20110831
  Serious: No
  Sender: FDA-Public Use
  Company Number: US-ABBOTT-10P-163-0646347-00

PATIENT
  Sex: Female
  Weight: 59.02 kg

DRUGS (3)
  1. ANTI INFLAMMATORY [Suspect]
     Indication: RHEUMATOID ARTHRITIS
     Dates: start: 20091201
  2. HUMIRA [Suspect]
     Indication: RHEUMATOID ARTHRITIS
     Dates: start: 20091201
  3. PREDNISONE [Concomitant]
     Indication: PRODUCT USED FOR UNKNOWN INDICATION

REACTIONS (6)
  - OEDEMA PERIPHERAL [None]
  - PAIN IN EXTREMITY [None]
  - DRUG INEFFECTIVE [None]
  - HEADACHE [None]
  - PAIN [None]
  - OEDEMA [None]
